FAERS Safety Report 6841458-8 (Version None)
Quarter: 2010Q3

REPORT INFORMATION
  Report Type: 
  Country: None (occurrence: None)
  Receive Date: 20100714
  Receipt Date: 20070706
  Transmission Date: 20110219
  Serious: No
  Sender: FDA-Public Use
  Company Number: US-PFIZER INC-2007056992

PATIENT
  Sex: Female
  Weight: 97.727 kg

DRUGS (11)
  1. CHANTIX [Suspect]
     Indication: SMOKING CESSATION THERAPY
     Dates: start: 20070601, end: 20070601
  2. INSULIN [Concomitant]
  3. GLYBURIDE [Concomitant]
  4. XANAX [Concomitant]
  5. DOXEPIN HCL [Concomitant]
  6. PREVACID [Concomitant]
  7. VALSARTAN [Concomitant]
  8. SYNTHROID [Concomitant]
  9. ALLEGRA [Concomitant]
  10. SPIRIVA [Concomitant]
  11. ADVAIR DISKUS 100/50 [Concomitant]

REACTIONS (3)
  - ASTHENIA [None]
  - FEELING ABNORMAL [None]
  - SOMNOLENCE [None]
